FAERS Safety Report 6268424-8 (Version None)
Quarter: 2009Q3

REPORT INFORMATION
  Report Type: 
  Country: None (occurrence: None)
  Receive Date: 20090715
  Receipt Date: 20070724
  Transmission Date: 20100115
  Serious: Yes (Hospitalization)
  Sender: FDA-Public Use
  Company Number: US-ASTRAZENECA-2007UW02086

PATIENT
  Age: 17637 Day
  Sex: Male
  Weight: 119.7 kg

DRUGS (21)
  1. SEROQUEL [Suspect]
     Indication: BIPOLAR DISORDER
     Route: 048
     Dates: start: 20020101
  2. SEROQUEL [Suspect]
     Indication: SLEEP DISORDER
     Route: 048
     Dates: start: 20020101
  3. SEROQUEL [Suspect]
     Dosage: 50 - 900 MG
     Route: 048
     Dates: start: 20040207
  4. SEROQUEL [Suspect]
     Dosage: 50 - 900 MG
     Route: 048
     Dates: start: 20040207
  5. EFFEXOR [Concomitant]
     Indication: INSOMNIA
     Dosage: 150 - 400 MG
     Route: 048
  6. METFORMIN HCL [Concomitant]
     Indication: TYPE 2 DIABETES MELLITUS
     Dosage: 50 - 2000 MG
     Route: 048
  7. GEODON [Concomitant]
     Indication: INSOMNIA
     Dosage: 80 - 160 MG
     Route: 048
  8. GEODON [Concomitant]
     Indication: AGITATION
     Dosage: 80 - 160 MG
     Route: 048
  9. ATIVAN [Concomitant]
     Indication: AGITATION
     Dosage: 1 - 4 MG
     Route: 048
  10. BUSPAR [Concomitant]
     Indication: ANXIETY
     Dosage: 15 - 90 MG
     Route: 048
  11. BUSPAR [Concomitant]
     Indication: BIPOLAR DISORDER
     Dosage: 15 - 90 MG
     Route: 048
  12. NEXIUM [Concomitant]
  13. AMBIEN [Concomitant]
     Indication: SLEEP DISORDER
  14. MOTRIN [Concomitant]
     Route: 048
  15. NEURONTIN [Concomitant]
     Dosage: 300 - 1200 MG
  16. PROZAC [Concomitant]
     Dosage: 30 - 40 MG
     Route: 048
  17. PROTONIX [Concomitant]
     Indication: ABDOMINAL DISCOMFORT
     Route: 048
  18. TRAZODONE [Concomitant]
     Indication: INSOMNIA
     Dosage: 50 -200 MG
     Route: 048
  19. LITHIUM [Concomitant]
     Dosage: 100 - 600 MG
  20. HALDOL [Concomitant]
  21. VISTARIL [Concomitant]
     Indication: ANXIETY
     Dosage: 25 - 150 MG

REACTIONS (6)
  - ALCOHOL POISONING [None]
  - ALCOHOLISM [None]
  - CONFUSIONAL STATE [None]
  - HALLUCINATION [None]
  - HEADACHE [None]
  - TYPE 2 DIABETES MELLITUS [None]
